FAERS Safety Report 7808776-8 (Version None)
Quarter: 2011Q4

REPORT INFORMATION
  Report Type: 
  Country: None (occurrence: None)
  Receive Date: 20111012
  Receipt Date: 20110929
  Transmission Date: 20120403
  Serious: Yes (Hospitalization)
  Sender: FDA-Public Use
  Company Number: PHHO2011DE16632

PATIENT
  Sex: Female

DRUGS (6)
  1. SIMULECT [Suspect]
     Indication: RENAL TRANSPLANT
     Dosage: 20 MG, / DAY
     Route: 048
     Dates: start: 20110906
  2. MYFORTIC [Suspect]
     Dosage: 720 MG, BID
     Route: 048
     Dates: start: 20110929
  3. SANDIMMUNE [Suspect]
     Indication: RENAL TRANSPLANT
     Dosage: 400 MG, BID
     Route: 048
     Dates: start: 20110905
  4. NO TREATMENT RECEIVED [Suspect]
     Indication: RENAL TRANSPLANT
  5. MYFORTIC [Suspect]
     Indication: RENAL TRANSPLANT
     Dosage: 2160 MG, BID
     Route: 048
     Dates: start: 20110905, end: 20110929
  6. PREDNISONE [Concomitant]
     Indication: RENAL TRANSPLANT
     Dosage: 5 MG, BID
     Route: 048
     Dates: start: 20110905

REACTIONS (2)
  - LYMPHOCELE [None]
  - SOFT TISSUE INJURY [None]
